FAERS Safety Report 6260578-2 (Version None)
Quarter: 2009Q2

REPORT INFORMATION
  Report Type: 
  Country: None (occurrence: None)
  Receive Date: 20090629
  Receipt Date: 20090623
  Transmission Date: 20091009
  Serious: Yes (Hospitalization, Other)
  Sender: FDA-Public Use
  Company Number: AECAN200900110

PATIENT
  Age: 62 Year
  Sex: Male

DRUGS (3)
  1. GAMUNEX [Suspect]
     Indication: POLYMYOSITIS
     Dosage: IV
     Route: 042
     Dates: start: 20090323, end: 20090324
  2. IGIVNEX (IMMUNE GLOBULIN IVE (HUMAN), CARRYLATE/CHROMATOGRAPHY PURIFIE [Concomitant]
     Indication: POLYMYOSITIS
     Dosage: IV
     Route: 042
     Dates: start: 20090323, end: 20090324
  3. UNSPECIFIED PREMEDICATION [Concomitant]

REACTIONS (2)
  - ACUTE MYOCARDIAL INFARCTION [None]
  - LOSS OF CONSCIOUSNESS [None]
